FAERS Safety Report 6370477-3 (Version None)
Quarter: 2009Q3

REPORT INFORMATION
  Report Type: 
  Country: None (occurrence: None)
  Receive Date: 20090923
  Receipt Date: 20090911
  Transmission Date: 20100115
  Serious: Yes (Hospitalization, Disabling, Other)
  Sender: FDA-Public Use
  Company Number: US-PFIZER INC-2005139794

PATIENT
  Sex: Female
  Weight: 65 kg

DRUGS (2)
  1. PREMARIN [Suspect]
     Indication: HORMONE REPLACEMENT THERAPY
     Dosage: 1.25 MG, UNK
     Route: 048
     Dates: start: 19900101, end: 19980101
  2. ESTRACE [Suspect]
     Indication: HORMONE REPLACEMENT THERAPY
     Dosage: 2 MG, UNK
     Dates: start: 19970101, end: 20000101

REACTIONS (2)
  - BREAST CANCER FEMALE [None]
  - PULMONARY THROMBOSIS [None]
